FAERS Safety Report 5692892-3 (Version None)
Quarter: 2008Q2

REPORT INFORMATION
  Report Type: 
  Country: None (occurrence: None)
  Receive Date: 20080326
  Receipt Date: 20071107
  Transmission Date: 20081010
  Serious: No
  Sender: FDA-Public Use
  Company Number: US-CVT-070180

PATIENT
  Age: 70 Year
  Sex: Female
  Weight: 52.2 kg

DRUGS (6)
  1. RANEXA [Suspect]
     Indication: ANGINA PECTORIS
     Dosage: 1000 MG, BID, ORAL
     Route: 048
     Dates: start: 20070927, end: 20071101
  2. VERELAN PM [Concomitant]
  3. TOPROL-XL [Concomitant]
  4. LIPITOR [Concomitant]
  5. PLAVIX [Concomitant]
  6. EVISTA [Concomitant]

REACTIONS (1)
  - LYMPHOEDEMA [None]
